FAERS Safety Report 6184797-9 (Version None)
Quarter: 2009Q2

REPORT INFORMATION
  Report Type: 
  Country: None (occurrence: None)
  Receive Date: 20090508
  Receipt Date: 20090430
  Transmission Date: 20091009
  Serious: Yes (Other)
  Sender: FDA-Public Use
  Company Number: JP-ALLERGAN-0906014US

PATIENT
  Sex: Female

DRUGS (4)
  1. ALESION SYRUP [Suspect]
     Indication: RHINITIS ALLERGIC
     Dosage: 0.9 G, QD
     Route: 048
     Dates: start: 20090420
  2. KLARICID [Suspect]
     Indication: DRUG USE FOR UNKNOWN INDICATION
     Dosage: 2 G, QD
     Route: 048
     Dates: start: 20090408
  3. MUCOSAL-L (MUCOSOLVAN) [Suspect]
     Indication: DRUG USE FOR UNKNOWN INDICATION
     Dosage: 1.2 G, QD
     Route: 048
     Dates: start: 20090408
  4. ZADITEN [Suspect]
     Indication: DRUG USE FOR UNKNOWN INDICATION
     Dosage: 1.2 G, QD
     Route: 048
     Dates: start: 20090416, end: 20090418

REACTIONS (2)
  - AGITATION [None]
  - HALLUCINATION [None]
